FAERS Safety Report 8838006 (Version 2)
Quarter: 2012Q4

REPORT INFORMATION
  Report Type: 
  Country: US (occurrence: US)
  Receive Date: 20121012
  Receipt Date: 20121102
  Transmission Date: 20130627
  Serious: Yes (Death)
  Sender: FDA-Public Use
  Company Number: US-ROCHE-1113696

PATIENT
  Sex: Male

DRUGS (1)
  1. NUTROPIN [Suspect]
     Indication: RENAL FAILURE CHRONIC
     Route: 065

REACTIONS (4)
  - Atrial fibrillation [Fatal]
  - Hypertrophic cardiomyopathy [Fatal]
  - Acute respiratory distress syndrome [Fatal]
  - Sepsis [Fatal]
